FAERS Safety Report 11090504 (Version 1)
Quarter: 2015Q2

REPORT INFORMATION
  Report Type: Spontaneous
  Country: GB (occurrence: None)
  Receive Date: 20150504
  Receipt Date: 20150504
  Transmission Date: 20150821
  Serious: No
  Sender: FDA-Public Use
  Company Number: None

PATIENT
  Age: 19 Year
  Sex: Male
  Weight: 81 kg

DRUGS (1)
  1. OLANZAPINE. [Suspect]
     Active Substance: OLANZAPINE
     Dates: start: 20150421

REACTIONS (8)
  - Paraesthesia [None]
  - Malaise [None]
  - Fear [None]
  - Insomnia [None]
  - Amino acid level abnormal [None]
  - Abdominal distension [None]
  - Enzyme abnormality [None]
  - Electrolyte imbalance [None]
